FAERS Safety Report 24029501 (Version 1)
Quarter: 2024Q2

REPORT INFORMATION
  Report Type: Spontaneous
  Country: US (occurrence: US)
  Receive Date: 20240628
  Receipt Date: 20240628
  Transmission Date: 20240716
  Serious: No
  Sender: FDA-Public Use
  Company Number: US-RIGEL Pharmaceuticals, INC-2024OLU000036

PATIENT

DRUGS (1)
  1. REZLIDHIA [Suspect]
     Active Substance: OLUTASIDENIB
     Indication: Acute leukaemia
     Dosage: 150 MG, QD
     Route: 048
     Dates: start: 20230501

REACTIONS (2)
  - Off label use [Unknown]
  - Product prescribing issue [Unknown]
